FAERS Safety Report 25755353 (Version 1)
Quarter: 2025Q3

REPORT INFORMATION
  Report Type: Spontaneous
  Country: JP (occurrence: JP)
  Receive Date: 20250903
  Receipt Date: 20250903
  Transmission Date: 20251021
  Serious: Yes (Hospitalization, Other)
  Sender: PHARMOBEDIENT CONSULTING, LLC
  Company Number: JP-Pharmobedient-000144

PATIENT
  Age: 73 Year
  Sex: Male

DRUGS (3)
  1. LITHIUM CARBONATE [Suspect]
     Active Substance: LITHIUM CARBONATE
     Indication: Bipolar disorder
     Dosage: MORE THAN 30 YEARS
  2. LEVOMEPROMAZINE [Concomitant]
     Active Substance: LEVOMEPROMAZINE
     Indication: Bipolar disorder
     Dosage: MORE THAN 30 YEARS
  3. LITHIUM CARBONATE [Suspect]
     Active Substance: LITHIUM CARBONATE
     Indication: Product used for unknown indication

REACTIONS (5)
  - Fall [Unknown]
  - Cellulitis [Recovering/Resolving]
  - Diabetes insipidus [Unknown]
  - Renal impairment [Unknown]
  - Immobile [Unknown]
